FAERS Safety Report 11761285 (Version 1)
Quarter: 2015Q4

REPORT INFORMATION
  Report Type: Spontaneous
  Country: US (occurrence: US)
  Receive Date: 20151120
  Receipt Date: 20151120
  Transmission Date: 20160304
  Serious: No
  Sender: FDA-Public Use
  Company Number: US-ASTRAZENECA-2015SF09790

PATIENT
  Sex: Male

DRUGS (1)
  1. TOPROL XL [Suspect]
     Active Substance: METOPROLOL SUCCINATE
     Indication: STENT PLACEMENT
     Route: 048

REACTIONS (3)
  - Product use issue [Unknown]
  - Alopecia [Unknown]
  - Off label use [Unknown]
